FAERS Safety Report 6145381-6 (Version None)
Quarter: 2009Q2

REPORT INFORMATION
  Report Type: 
  Country: None (occurrence: None)
  Receive Date: 20090402
  Receipt Date: 20090324
  Transmission Date: 20091009
  Serious: Yes (Other)
  Sender: FDA-Public Use
  Company Number: CHPA2009US07875

PATIENT
  Age: 48 Year
  Sex: Male
  Weight: 117.9 kg

DRUGS (1)
  1. NICOTINE [Suspect]
     Indication: SMOKING CESSATION THERAPY
     Dosage: 21 MG, QD, TRANSDERMAL
     Route: 062
     Dates: start: 20090301, end: 20090301

REACTIONS (2)
  - APPLICATION SITE SCAR [None]
  - BURNING SENSATION [None]
